FAERS Safety Report 5515962-9 (Version None)
Quarter: 2007Q4

REPORT INFORMATION
  Report Type: 
  Country: None (occurrence: None)
  Receive Date: 20071114
  Receipt Date: 20061101
  Transmission Date: 20080405
  Serious: No
  Sender: FDA-Public Use
  Company Number: A0625535A

PATIENT
  Age: 35 Year
  Sex: Female

DRUGS (2)
  1. COMMIT [Suspect]
  2. ASPARTAME [Suspect]

REACTIONS (9)
  - ANXIETY [None]
  - FEELING ABNORMAL [None]
  - FEELING HOT [None]
  - INTENTIONAL DRUG MISUSE [None]
  - MUSCULAR WEAKNESS [None]
  - NICOTINE DEPENDENCE [None]
  - PARAESTHESIA [None]
  - REACTION TO FOOD ADDITIVE [None]
  - TREMOR [None]
